FAERS Safety Report 6419788-3 (Version None)
Quarter: 2009Q4

REPORT INFORMATION
  Report Type: 
  Country: None (occurrence: None)
  Receive Date: 20091029
  Receipt Date: 20091021
  Transmission Date: 20100525
  Serious: Yes (Other)
  Sender: FDA-Public Use
  Company Number: IT-BAYER-200932271GPV

PATIENT
  Age: 77 Year
  Sex: Female

DRUGS (10)
  1. ASPIRIN [Suspect]
     Indication: DRUG USE FOR UNKNOWN INDICATION
     Route: 048
     Dates: start: 20080820, end: 20090820
  2. COUMADIN [Suspect]
     Indication: DRUG USE FOR UNKNOWN INDICATION
     Route: 048
     Dates: start: 20080820, end: 20090820
  3. BISOPROLOL FUMARATE [Concomitant]
     Route: 048
  4. ESOPRAL [Concomitant]
  5. CORDARONE [Concomitant]
  6. LASIX [Concomitant]
  7. CRESTOR [Concomitant]
     Route: 048
  8. KCL-RETARD [Concomitant]
     Route: 048
  9. HUMALOG [Concomitant]
     Route: 058
  10. LANTUS [Concomitant]
     Route: 058

REACTIONS (3)
  - NOCTURNAL DYSPNOEA [None]
  - ORTHOPNOEA [None]
  - RECTAL HAEMORRHAGE [None]
